FAERS Safety Report 20498811 (Version 3)
Quarter: 2022Q2

REPORT INFORMATION
  Report Type: Spontaneous
  Country: US (occurrence: US)
  Receive Date: 20220222
  Receipt Date: 20220405
  Transmission Date: 20220720
  Serious: No
  Sender: FDA-Public Use
  Company Number: US-AMGEN-USASP2022029707

PATIENT
  Age: 73 Year
  Sex: Female
  Weight: 95.25 kg

DRUGS (1)
  1. NEULASTA [Suspect]
     Active Substance: PEGFILGRASTIM
     Indication: Product used for unknown indication
     Dosage: UNK UNK, AFTER CHEMO
     Route: 065

REACTIONS (3)
  - Wrong technique in product usage process [Unknown]
  - Device physical property issue [Unknown]
  - Application site pain [Unknown]

NARRATIVE: CASE EVENT DATE: 20220216
